FAERS Safety Report 7451406-8 (Version None)
Quarter: 2011Q2

REPORT INFORMATION
  Report Type: 
  Country: None (occurrence: None)
  Receive Date: 20110502
  Receipt Date: 20110428
  Transmission Date: 20111010
  Serious: Yes (Hospitalization)
  Sender: FDA-Public Use
  Company Number: AU-PFIZER INC-2011093264

PATIENT
  Age: 29 Year
  Sex: Male
  Weight: 80 kg

DRUGS (1)
  1. CHAMPIX [Suspect]
     Dosage: 0.1 MG, 1X/DAY

REACTIONS (5)
  - INSOMNIA [None]
  - MEMORY IMPAIRMENT [None]
  - ANXIETY [None]
  - ENERGY INCREASED [None]
  - ABNORMAL BEHAVIOUR [None]
